FAERS Safety Report 9769281 (Version 1)
Quarter: 2013Q4

REPORT INFORMATION
  Report Type: Spontaneous
  Country: AU (occurrence: None)
  Receive Date: 20131216
  Receipt Date: 20131216
  Transmission Date: 20140711
  Serious: Yes (Other)
  Sender: FDA-Public Use
  Company Number: 2013000335

PATIENT
  Sex: Female

DRUGS (6)
  1. ACEON (PERINDOPRIL ERBUMINE) TABLET [Suspect]
     Indication: PRODUCT USED FOR UNKNOWN INDICATION
  2. CALTRATE [Concomitant]
  3. EPREX [Concomitant]
  4. MAXOLON [Concomitant]
  5. CALCITRIOL [Concomitant]
  6. SOMAC [Concomitant]

REACTIONS (4)
  - Dysphagia [None]
  - Abdominal distension [None]
  - Angioedema [None]
  - Pharyngeal oedema [None]
